FAERS Safety Report 8551061-X (Version None)
Quarter: 2012Q3

REPORT INFORMATION
  Report Type: 
  Country: None (occurrence: None)
  Receive Date: 20120730
  Receipt Date: 20120719
  Transmission Date: 20120928
  Serious: Yes (Hospitalization)
  Sender: FDA-Public Use
  Company Number: SG-JNJFOC-20120521276

PATIENT
  Sex: Male
  Weight: 65.9 kg

DRUGS (7)
  1. PREDNISOLONE [Suspect]
     Route: 048
     Dates: start: 20120224, end: 20120527
  2. PREDNISOLONE [Suspect]
     Indication: PROSTATE CANCER METASTATIC
     Route: 048
     Dates: start: 20120528, end: 20120528
  3. PREDNISOLONE [Suspect]
     Route: 048
     Dates: start: 20120531
  4. GOSERELIN [Concomitant]
     Indication: HORMONE THERAPY
     Route: 065
     Dates: start: 20080711
  5. ABIRATERONE ACETATE [Suspect]
     Route: 048
  6. ABIRATERONE ACETATE [Suspect]
     Indication: PROSTATE CANCER METASTATIC
     Route: 048
     Dates: start: 20120224, end: 20120528
  7. PREDNISOLONE [Suspect]
     Route: 048
     Dates: start: 20120529, end: 20120530

REACTIONS (1)
  - CHEST DISCOMFORT [None]
